FAERS Safety Report 8137821-8 (Version None)
Quarter: 2012Q1

REPORT INFORMATION
  Report Type: 
  Country: None (occurrence: None)
  Receive Date: 20120215
  Receipt Date: 20120104
  Transmission Date: 20120608
  Serious: Yes (Death)
  Sender: FDA-Public Use
  Company Number: US-COVIDIEN/TYCO HEALTHCARE/MALLINCKRODT-T201200230

PATIENT
  Age: 55 Year
  Sex: Female

DRUGS (3)
  1. TRAZODONE HCL [Suspect]
     Route: 048
  2. LORAZEPAM [Suspect]
     Route: 048
  3. HYDROMORPHONE HCL [Suspect]
     Route: 048

REACTIONS (1)
  - COMPLETED SUICIDE [None]
